FAERS Safety Report 5051122-6 (Version None)
Quarter: 2006Q3

REPORT INFORMATION
  Report Type: 
  Country: None (occurrence: None)
  Receive Date: 20060714
  Receipt Date: 20060704
  Transmission Date: 20061208
  Serious: Yes (Other)
  Sender: FDA-Public Use
  Company Number: JP-JNJFOC-20060701529

PATIENT
  Age: 17 Year
  Sex: Female

DRUGS (1)
  1. RISPERDAL [Suspect]
     Indication: HALLUCINATION, AUDITORY
     Route: 048

REACTIONS (4)
  - DIZZINESS [None]
  - GAZE PALSY [None]
  - HYPERPHAGIA [None]
  - INTENTIONAL SELF-INJURY [None]
